FAERS Safety Report 24297915 (Version 1)
Quarter: 2024Q3

REPORT INFORMATION
  Report Type: Spontaneous
  Country: US (occurrence: US)
  Receive Date: 20240909
  Receipt Date: 20240909
  Transmission Date: 20241016
  Serious: Yes (Other)
  Sender: ROCHE
  Company Number: US-ROCHE-10000069318

PATIENT
  Age: 72 Year
  Sex: Female

DRUGS (10)
  1. VABYSMO [Suspect]
     Active Substance: FARICIMAB\FARICIMAB-SVOA
     Indication: Diabetic retinopathy
     Dosage: LAST DOSE: 21-AUG-2024
     Route: 050
     Dates: start: 20240529
  2. VABYSMO [Suspect]
     Active Substance: FARICIMAB\FARICIMAB-SVOA
     Indication: Macular oedema
  3. ATORVASTATIN [Concomitant]
     Active Substance: ATORVASTATIN
     Indication: Diabetic retinopathy
  4. ATORVASTATIN [Concomitant]
     Active Substance: ATORVASTATIN
     Indication: Macular oedema
  5. ATROPINE [Concomitant]
     Active Substance: ATROPINE
  6. CLOPIDOGREL [Concomitant]
     Active Substance: CLOPIDOGREL BISULFATE
  7. ENTRESTO [Concomitant]
     Active Substance: SACUBITRIL\VALSARTAN
  8. ISOSORBIDE MONONITRATE [Concomitant]
     Active Substance: ISOSORBIDE MONONITRATE
  9. LEVOTHYROXINE [Concomitant]
     Active Substance: LEVOTHYROXINE\LEVOTHYROXINE SODIUM
  10. METOPROLOL [Concomitant]
     Active Substance: METOPROLOL

REACTIONS (3)
  - Eye infection [Not Recovered/Not Resolved]
  - Endophthalmitis [Unknown]
  - Off label use [Unknown]

NARRATIVE: CASE EVENT DATE: 20240824
